FAERS Safety Report 8184923-6 (Version None)
Quarter: 2012Q1

REPORT INFORMATION
  Report Type: 
  Country: None (occurrence: None)
  Receive Date: 20120305
  Receipt Date: 20120227
  Transmission Date: 20120608
  Serious: Yes (Other)
  Sender: FDA-Public Use
  Company Number: US-GLAXOSMITHKLINE-A0967670A

PATIENT
  Sex: Female

DRUGS (2)
  1. LAMICTAL [Suspect]
     Indication: CONVULSION
     Dosage: 75MG PER DAY
     Route: 048
     Dates: start: 20070101, end: 20070101
  2. KEPPRA [Concomitant]

REACTIONS (3)
  - RASH [None]
  - BLISTER [None]
  - RASH MACULAR [None]
